FAERS Safety Report 14781746 (Version 3)
Quarter: 2018Q2

REPORT INFORMATION
  Report Type: Spontaneous
  Country: US (occurrence: US)
  Receive Date: 20180420
  Receipt Date: 20180507
  Transmission Date: 20180711
  Serious: Yes (Hospitalization, Other)
  Sender: FDA-Public Use
  Company Number: US-ABBVIE-18K-163-2328964-00

PATIENT
  Age: 53 Year
  Sex: Male
  Weight: 99.88 kg

DRUGS (12)
  1. METFORMIN [Concomitant]
     Active Substance: METFORMIN HYDROCHLORIDE
     Indication: DIABETES MELLITUS
  2. ATORVASTATIN [Concomitant]
     Active Substance: ATORVASTATIN
     Indication: BLOOD CHOLESTEROL INCREASED
     Dates: end: 201802
  3. METOPROLOL. [Concomitant]
     Active Substance: METOPROLOL
     Indication: HYPERTENSION
  4. VITAMIN C [Concomitant]
     Active Substance: ASCORBIC ACID
     Indication: PRODUCT USED FOR UNKNOWN INDICATION
  5. GLIPIZIDE. [Concomitant]
     Active Substance: GLIPIZIDE
     Indication: DIABETES MELLITUS
  6. TRAZODONE [Concomitant]
     Active Substance: TRAZODONE HYDROCHLORIDE
     Indication: SLEEP DISORDER THERAPY
     Dates: end: 201802
  7. CYMBALTA [Concomitant]
     Active Substance: DULOXETINE HYDROCHLORIDE
     Indication: DEPRESSION
     Dates: end: 201802
  8. HUMIRA [Suspect]
     Active Substance: ADALIMUMAB
     Indication: ANKYLOSING SPONDYLITIS
     Route: 058
     Dates: start: 2017, end: 20180228
  9. HUMIRA [Suspect]
     Active Substance: ADALIMUMAB
     Route: 058
     Dates: start: 20180327, end: 20180327
  10. NPH INSULIN [Concomitant]
     Active Substance: INSULIN BEEF
     Indication: DIABETES MELLITUS
  11. PRAZOSIN. [Concomitant]
     Active Substance: PRAZOSIN
     Indication: NIGHTMARE
     Dates: end: 201802
  12. LOSARTAN. [Concomitant]
     Active Substance: LOSARTAN
     Indication: HYPERTENSION

REACTIONS (39)
  - Gait disturbance [Not Recovered/Not Resolved]
  - Kidney enlargement [Not Recovered/Not Resolved]
  - Oxygen saturation decreased [Recovering/Resolving]
  - Penile infection [Recovered/Resolved]
  - Gastrointestinal haemorrhage [Recovering/Resolving]
  - Gastrointestinal infection [Unknown]
  - Hyperhidrosis [Not Recovered/Not Resolved]
  - Palpitations [Recovering/Resolving]
  - Chest discomfort [Not Recovered/Not Resolved]
  - Drug-induced liver injury [Unknown]
  - Tricuspid valve incompetence [Not Recovered/Not Resolved]
  - Cardiomegaly [Not Recovered/Not Resolved]
  - Anaphylactic reaction [Recovered/Resolved]
  - Gastrointestinal haemorrhage [Recovered/Resolved]
  - Pancreatitis [Recovered/Resolved]
  - Cardiac failure congestive [Not Recovered/Not Resolved]
  - Gastritis [Unknown]
  - Rectal haemorrhage [Recovered/Resolved]
  - Oesophagitis [Unknown]
  - Cardiac disorder [Unknown]
  - Diverticulum [Recovered/Resolved]
  - Right ventricular dilatation [Not Recovered/Not Resolved]
  - Pulmonary valve incompetence [Not Recovered/Not Resolved]
  - Dyspnoea [Recovering/Resolving]
  - Chest pain [Not Recovered/Not Resolved]
  - Renal cyst [Not Recovered/Not Resolved]
  - Blood glucose increased [Recovered/Resolved]
  - Hyperglycaemia [Recovered/Resolved]
  - Kidney infection [Recovered/Resolved]
  - Drug hypersensitivity [Recovering/Resolving]
  - Hepatic enzyme increased [Unknown]
  - Renal pain [Not Recovered/Not Resolved]
  - Urinary tract infection [Recovered/Resolved]
  - Diverticulum [Not Recovered/Not Resolved]
  - Kidney infection [Not Recovered/Not Resolved]
  - Immunodeficiency [Unknown]
  - Renal disorder [Unknown]
  - Pancreatitis [Recovering/Resolving]
  - Urticaria [Recovering/Resolving]

NARRATIVE: CASE EVENT DATE: 2017
